FAERS Safety Report 14542927 (Version 3)
Quarter: 2018Q2

REPORT INFORMATION
  Report Type: Spontaneous
  Country: DE (occurrence: DE)
  Receive Date: 20180216
  Receipt Date: 20180528
  Transmission Date: 20180711
  Serious: Yes (Hospitalization, Other)
  Sender: FDA-Public Use
  Company Number: PHHY2018DE024534

PATIENT
  Age: 47 Year
  Sex: Female

DRUGS (18)
  1. PROTHIPENDYL [Suspect]
     Active Substance: PROTHIPENDYL
     Dosage: 40 MG, QD
     Route: 048
     Dates: start: 20150710, end: 20150719
  2. PIRENZEPINE [Concomitant]
     Active Substance: PIRENZEPINE
     Indication: PRODUCT USED FOR UNKNOWN INDICATION
     Dosage: 100 MG, QD
     Route: 065
  3. ABILIFY [Suspect]
     Active Substance: ARIPIPRAZOLE
     Dosage: 5 MG, QD
     Route: 048
     Dates: start: 20150708, end: 20150716
  4. ABILIFY [Suspect]
     Active Substance: ARIPIPRAZOLE
     Dosage: 7.5 MG, QD
     Route: 048
     Dates: start: 20150630, end: 20150703
  5. HALOPERIDOL. [Suspect]
     Active Substance: HALOPERIDOL
     Dosage: 7.5 MG, QD
     Route: 048
     Dates: start: 20150625
  6. HALOPERIDOL. [Suspect]
     Active Substance: HALOPERIDOL
     Dosage: 5 MG, QD
     Route: 048
     Dates: start: 20150626, end: 20150630
  7. ABILIFY [Suspect]
     Active Substance: ARIPIPRAZOLE
     Dosage: 5 MG, QD
     Route: 048
     Dates: start: 20150627, end: 20150629
  8. VALPROAT [Concomitant]
     Active Substance: VALPROATE SODIUM
     Indication: PRODUCT USED FOR UNKNOWN INDICATION
     Dosage: 600 MG, QD
     Route: 065
  9. ABILIFY [Suspect]
     Active Substance: ARIPIPRAZOLE
     Dosage: 15 MG, QD
     Route: 048
     Dates: start: 20150704, end: 20150707
  10. PROTHIPENDYL [Suspect]
     Active Substance: PROTHIPENDYL
     Indication: PRODUCT USED FOR UNKNOWN INDICATION
     Dosage: 80 MG, QD
     Route: 048
     Dates: start: 20150624, end: 20150709
  11. DOMINAL (PROTHIPENDYL HYDROCHLORIDE) [Suspect]
     Active Substance: PROTHIPENDYL HYDROCHLORIDE
     Dosage: 40 MG, QD
     Route: 048
     Dates: start: 20150710, end: 20150719
  12. CLOZAPINE. [Concomitant]
     Active Substance: CLOZAPINE
     Indication: PRODUCT USED FOR UNKNOWN INDICATION
     Dosage: UNK
     Route: 065
  13. HALOPERIDOL. [Suspect]
     Active Substance: HALOPERIDOL
     Indication: PRODUCT USED FOR UNKNOWN INDICATION
     Dosage: 7.5 MG, QD
     Route: 048
     Dates: start: 20150618
  14. HALOPERIDOL. [Suspect]
     Active Substance: HALOPERIDOL
     Dosage: 10 MG, QD
     Route: 048
     Dates: start: 20150619, end: 20150624
  15. HALOPERIDOL. [Suspect]
     Active Substance: HALOPERIDOL
     Dosage: 2.5 MG, QD
     Route: 048
     Dates: start: 20150701, end: 20150701
  16. ABILIFY [Suspect]
     Active Substance: ARIPIPRAZOLE
     Indication: PRODUCT USED FOR UNKNOWN INDICATION
     Dosage: 2.5 MG, QD
     Route: 048
     Dates: start: 20150626, end: 20150626
  17. DOMINAL (PROTHIPENDYL HYDROCHLORIDE) [Suspect]
     Active Substance: PROTHIPENDYL HYDROCHLORIDE
     Indication: PRODUCT USED FOR UNKNOWN INDICATION
     Dosage: 80 MG, QD
     Route: 048
     Dates: start: 20150624, end: 20150709
  18. CLEXANE [Suspect]
     Active Substance: ENOXAPARIN SODIUM
     Indication: PRODUCT USED FOR UNKNOWN INDICATION
     Dosage: 40 MG, QD
     Route: 048
     Dates: start: 20150620

REACTIONS (5)
  - Speech disorder [Recovering/Resolving]
  - Saliva altered [Unknown]
  - Dysphagia [Recovered/Resolved]
  - Dysarthria [Recovering/Resolving]
  - Dysarthria [Unknown]

NARRATIVE: CASE EVENT DATE: 20150624
